FAERS Safety Report 4428450-8 (Version None)
Quarter: 2004Q3

REPORT INFORMATION
  Report Type: 
  Country: None (occurrence: None)
  Receive Date: 20040813
  Receipt Date: 20040801
  Transmission Date: 20050211
  Serious: Yes (Hospitalization)
  Sender: FDA-Public Use
  Company Number: 04H-028-0269622-00

PATIENT
  Age: 20 Year
  Sex: Female
  Weight: 51.5 kg

DRUGS (7)
  1. SUCCINYLCHOLINE CHLORIDE [Suspect]
     Indication: ANAESTHESIA
     Dosage: 10 MG
  2. ATROPINE [Suspect]
     Indication: ANAESTHESIA
     Dosage: 0.4 MG INTRAMUSCULAR
     Route: 030
  3. PENTAZOCINE [Concomitant]
  4. THIOPENTAL SODIUM [Concomitant]
  5. HALOTHANE [Concomitant]
  6. NITROUS OXIDE [Concomitant]
  7. OXYGEN [Concomitant]

REACTIONS (2)
  - DRUG INTERACTION [None]
  - HYPERTHERMIA MALIGNANT [None]
